FAERS Safety Report 8165186-4 (Version None)
Quarter: 2012Q1

REPORT INFORMATION
  Report Type: 
  Country: None (occurrence: None)
  Receive Date: 20120227
  Receipt Date: 20120221
  Transmission Date: 20120608
  Serious: Yes (Other)
  Sender: FDA-Public Use
  Company Number: US-PFIZER INC-2012047224

PATIENT
  Sex: Female
  Weight: 163 kg

DRUGS (20)
  1. EFFEXOR XR [Suspect]
     Indication: DEPRESSION
     Dosage: 300 MG, DAILY
     Route: 048
     Dates: end: 20120131
  2. EFFEXOR XR [Suspect]
     Dosage: 225MG DAILY
     Dates: start: 20120201
  3. WELLBUTRIN SR [Suspect]
     Indication: FEELING ABNORMAL
  4. GLYBURIDE [Concomitant]
     Indication: DIABETES MELLITUS
     Dosage: 10 MG, 2X/DAY
  5. WELLBUTRIN SR [Suspect]
     Indication: NAUSEA
     Dosage: 150 MG, 2X/DAY
     Route: 048
  6. ADVAIR DISKUS 100/50 [Concomitant]
     Indication: ASTHMA
     Dosage: 250/50 UG, 2X/DAY
  7. SIMVASTATIN [Concomitant]
     Indication: BLOOD CHOLESTEROL ABNORMAL
     Dosage: 20 MG DAILY
  8. METFORMIN [Concomitant]
     Indication: DIABETES MELLITUS
     Dosage: 500 MG, 3X/DAY
  9. ALLEGRA [Concomitant]
     Indication: HYPERSENSITIVITY
     Dosage: 180 MG, DAILY
  10. LORAZEPAM [Concomitant]
     Indication: ANXIETY
     Dosage: 1 MG, 3X/DAY
  11. MULTI-VITAMINS [Concomitant]
     Dosage: UNK
  12. OMEPRAZOLE [Concomitant]
     Indication: GASTROOESOPHAGEAL REFLUX DISEASE
     Dosage: 20 MG, 2X/DAY
  13. BACLOFEN [Concomitant]
     Indication: MUSCLE SPASMS
     Dosage: 10 MG, AS NEEDED
  14. ALBUTEROL SULFATE [Concomitant]
     Indication: ASTHMA
     Dosage: UNK
  15. AMLODIPINE [Concomitant]
     Indication: HYPERTENSION
     Dosage: 5 MG DAILY
  16. SLOW-FE [Concomitant]
     Indication: MINERAL SUPPLEMENTATION
     Dosage: UNK
  17. VITAMIN D [Concomitant]
     Dosage: 1000 IU DAILY
  18. METOPROLOL [Concomitant]
     Indication: HYPERTENSION
     Dosage: 50 MG DAILY
  19. FLONASE [Concomitant]
     Indication: HYPERSENSITIVITY
     Dosage: UNK
     Route: 045
  20. FISH OIL [Concomitant]
     Dosage: 300 MG, 3X/DAY

REACTIONS (7)
  - WITHDRAWAL SYNDROME [None]
  - HALLUCINATION [None]
  - BLOOD SODIUM DECREASED [None]
  - MALAISE [None]
  - DRUG INEFFECTIVE [None]
  - FATIGUE [None]
  - NAUSEA [None]
